FAERS Safety Report 10460954 (Version 1)
Quarter: 2014Q3

REPORT INFORMATION
  Report Type: Spontaneous
  Country: BD (occurrence: BD)
  Receive Date: 20140918
  Receipt Date: 20140918
  Transmission Date: 20150326
  Serious: Yes (Hospitalization)
  Sender: FDA-Public Use
  Company Number: PHHY2014BD117169

PATIENT
  Age: 15 Year
  Sex: Female

DRUGS (1)
  1. MIACALCIC [Suspect]
     Active Substance: CALCITONIN SALMON
     Indication: ROAD TRAFFIC ACCIDENT
     Dosage: UNK UKN, UNK

REACTIONS (4)
  - Malaise [Unknown]
  - Convulsion [Unknown]
  - Dizziness [Unknown]
  - Vomiting [Unknown]

NARRATIVE: CASE EVENT DATE: 20140807
